FAERS Safety Report 8063727-9 (Version None)
Quarter: 2012Q1

REPORT INFORMATION
  Report Type: 
  Country: None (occurrence: None)
  Receive Date: 20120123
  Receipt Date: 20120117
  Transmission Date: 20120608
  Serious: Yes (Hospitalization)
  Sender: FDA-Public Use
  Company Number: PHHY2012IT000928

PATIENT
  Sex: Male

DRUGS (4)
  1. KETOPROFEN [Suspect]
     Indication: ARTHRALGIA
     Dosage: 1 DF, UNK
     Dates: start: 20111209, end: 20111211
  2. LANOXIN [Concomitant]
     Dosage: 0.125 MG, UNK
     Route: 048
  3. SINTROM [Suspect]
     Indication: ATRIAL FIBRILLATION
     Dosage: 2 MG, UNK
     Dates: start: 20080101, end: 20111212
  4. SOLOSA [Concomitant]
     Indication: DIABETES MELLITUS
     Dosage: 2 MG, UNK
     Route: 048

REACTIONS (4)
  - INTERNATIONAL NORMALISED RATIO INCREASED [None]
  - GASTRITIS EROSIVE [None]
  - EROSIVE OESOPHAGITIS [None]
  - ANAEMIA [None]
